FAERS Safety Report 8218597-2 (Version None)
Quarter: 2012Q1

REPORT INFORMATION
  Report Type: 
  Country: None (occurrence: None)
  Receive Date: 20120319
  Receipt Date: 20120305
  Transmission Date: 20120608
  Serious: Yes (Other)
  Sender: FDA-Public Use
  Company Number: ES-CELGENEUS-144-50794-11122788

PATIENT
  Sex: Male

DRUGS (3)
  1. TORSEMIDE [Concomitant]
     Dosage: 20 MILLIGRAM
     Route: 065
  2. VIDAZA [Suspect]
     Dosage: 50 MILLIGRAM/SQ. METER
     Route: 050
     Dates: start: 20110523, end: 20110527
  3. TORSEMIDE [Concomitant]
     Dosage: 10 MILLIGRAM
     Route: 065

REACTIONS (3)
  - DIZZINESS [None]
  - EXTRASYSTOLES [None]
  - PYREXIA [None]
